FAERS Safety Report 8356021 (Version 2)
Quarter: 2012Q4

REPORT INFORMATION
  Report Type: 
  Country: US (occurrence: US)
  Receive Date: 20120126
  Receipt Date: 20121224
  Transmission Date: 20130627
  Serious: Yes (Death, Hospitalization, Other)
  Sender: FDA-Public Use
  Company Number: US-ELI_LILLY_AND_COMPANY-US201201006615

PATIENT
  Sex: Male

DRUGS (13)
  1. BYETTA [Suspect]
     Indication: DIABETES MELLITUS
     Dosage: 5 ug, bid
     Route: 058
     Dates: start: 20090723
  2. BYETTA [Suspect]
     Dosage: 10 ug, bid
     Route: 058
     Dates: start: 20090806
  3. DILTIAZEM [Concomitant]
     Dosage: 180 mg, qd
  4. METFORMIN [Concomitant]
     Dosage: 000 mg, bid
  5. SIMVASTATIN [Concomitant]
     Dosage: 40 mg, bid
  6. ACTOS [Concomitant]
     Dosage: 45 mg, qd
  7. ASPIRIN [Concomitant]
     Dosage: 81 mg, qd
  8. DIOVAN [Concomitant]
     Dosage: 160 mg, bid
  9. METOPROLOL [Concomitant]
     Dosage: 25 mg, bid
  10. FUROSEMIDE [Concomitant]
     Dosage: 20 mg, qd
  11. LEVEMIR [Concomitant]
     Dosage: 10 u, each evening
  12. PERCOCET [Concomitant]
     Indication: PAIN
     Dosage: UNK, prn
  13. COMPAZINE [Concomitant]
     Indication: NAUSEA
     Dosage: 10 mg, prn

REACTIONS (5)
  - Pancreatic carcinoma metastatic [Fatal]
  - Metastases to liver [Not Recovered/Not Resolved]
  - Metastases to pleura [Not Recovered/Not Resolved]
  - Septic shock [Recovering/Resolving]
  - Renal failure acute [Recovering/Resolving]
